FAERS Safety Report 8474961-8 (Version None)
Quarter: 2012Q2

REPORT INFORMATION
  Report Type: 
  Country: None (occurrence: None)
  Receive Date: 20120628
  Receipt Date: 20120625
  Transmission Date: 20120825
  Serious: Yes (Hospitalization, Disabling)
  Sender: FDA-Public Use
  Company Number: PHEH2012US007081

PATIENT
  Sex: Female
  Weight: 65.76 kg

DRUGS (7)
  1. GILENYA [Suspect]
     Indication: MULTIPLE SCLEROSIS
     Dosage: 0.5 MG, QD
     Route: 048
     Dates: start: 20110909
  2. ULTRAM [Concomitant]
     Indication: PAIN
     Dosage: 50 MG, Q6H
     Route: 048
  3. THYROID TAB [Concomitant]
     Indication: HYPOTHYROIDISM
     Dosage: 0.50 UG, QD
     Route: 048
  4. DDAVP [Concomitant]
     Indication: VON WILLEBRAND'S DISEASE
     Dosage: UNK UKN, UNK
  5. TRAZODONE HCL [Concomitant]
     Indication: SLEEP DISORDER
     Dosage: 150 MG, QHS
     Route: 048
  6. CYMBALTA [Concomitant]
     Indication: DEPRESSION
     Dosage: 90 MG, QD
     Route: 048
  7. ADDERALL XR 10 [Concomitant]
     Indication: ATTENTION DEFICIT/HYPERACTIVITY DISORDER
     Dosage: 30 MG, QD
     Route: 048

REACTIONS (2)
  - INFLUENZA [None]
  - LIMB DISCOMFORT [None]
